FAERS Safety Report 4468016-7 (Version None)
Quarter: 2004Q4

REPORT INFORMATION
  Report Type: 
  Country: None (occurrence: None)
  Receive Date: 20041007
  Receipt Date: 20040929
  Transmission Date: 20050328
  Serious: Yes (Death)
  Sender: FDA-Public Use
  Company Number: 200413596FR

PATIENT
  Age: 82 Year
  Sex: Male

DRUGS (8)
  1. DI-ANTALVIC [Suspect]
     Route: 048
     Dates: start: 20040617, end: 20040704
  2. LASILIX [Suspect]
     Route: 048
     Dates: start: 20040617
  3. AUGMENTIN [Suspect]
     Route: 048
     Dates: start: 20040615, end: 20040617
  4. CIPROFLOXACIN [Suspect]
     Indication: DYSPNOEA
     Route: 042
     Dates: start: 20040624, end: 20040704
  5. MOPRAL [Suspect]
     Route: 048
     Dates: start: 20040617, end: 20040704
  6. CORTANCYL [Concomitant]
     Route: 048
  7. DILTIAZEM HCL [Concomitant]
     Route: 048
     Dates: end: 20040627
  8. DIGOXIN [Concomitant]
     Route: 048

REACTIONS (8)
  - CARDIOMEGALY [None]
  - FLUID OVERLOAD [None]
  - HEPATITIS FULMINANT [None]
  - PNEUMONIA ASPIRATION [None]
  - PROTEUS INFECTION [None]
  - PULMONARY FIBROSIS [None]
  - PULMONARY HYPERTENSION [None]
  - SPUTUM CULTURE POSITIVE [None]
